FAERS Safety Report 13953029 (Version 1)
Quarter: 2017Q3

REPORT INFORMATION
  Report Type: Spontaneous
  Country: US (occurrence: US)
  Receive Date: 20170911
  Receipt Date: 20170911
  Transmission Date: 20171128
  Serious: No
  Sender: FDA-Public Use
  Company Number: US-TEVA-694586USA

PATIENT
  Sex: Female
  Weight: 45.4 kg

DRUGS (4)
  1. FENTANYL. [Suspect]
     Active Substance: FENTANYL
     Indication: INTERVERTEBRAL DISC PROTRUSION
     Dates: start: 20160721
  2. FENTANYL. [Suspect]
     Active Substance: FENTANYL
     Indication: INTERVERTEBRAL DISC DEGENERATION
  3. FENTANYL. [Suspect]
     Active Substance: FENTANYL
     Indication: NERVE COMPRESSION
  4. FENTANYL. [Suspect]
     Active Substance: FENTANYL
     Indication: LYME DISEASE

REACTIONS (4)
  - Drug administered at inappropriate site [Unknown]
  - Withdrawal syndrome [Unknown]
  - Product adhesion issue [Unknown]
  - Product odour abnormal [Unknown]
